FAERS Safety Report 4308263-8 (Version None)
Quarter: 2004Q1

REPORT INFORMATION
  Report Type: 
  Country: None (occurrence: None)
  Receive Date: 20040301
  Receipt Date: 20031013
  Transmission Date: 20041129
  Serious: No
  Sender: FDA-Public Use
  Company Number: US-BRISTOL-MYERS SQUIBB COMPANY-12408860

PATIENT

DRUGS (3)
  1. GLUCOPHAGE [Suspect]
  2. GLIPIZIDE [Suspect]
  3. PIOGLITAZONE HCL [Suspect]

REACTIONS (1)
  - BLOOD GLUCOSE INCREASED [None]
